FAERS Safety Report 9263150 (Version 1)
Quarter: 2013Q1

REPORT INFORMATION
  Report Type: Spontaneous
  Country: US (occurrence: None)
  Receive Date: 20121212
  Receipt Date: 20121212
  Transmission Date: 20140127
  Serious: No
  Sender: FDA-Public Use
  Company Number: 12010USA013052

PATIENT
  Age: 58 Year
  Sex: Male

DRUGS (3)
  1. PEGINTRON [Suspect]
     Indication: HEPATITIS C
     Dates: start: 20121019
  2. RIBAVIRIN [Suspect]
     Dates: start: 20121019
  3. VICTRELIS [Suspect]
     Indication: HEPATITIS C
     Dates: start: 20121116

REACTIONS (6)
  - Oral mucosal blistering [None]
  - Palpitations [None]
  - Insomnia [None]
  - Nausea [None]
  - Decreased appetite [None]
  - Dizziness [None]
